FAERS Safety Report 23346304 (Version 1)
Quarter: 2023Q4

REPORT INFORMATION
  Report Type: Report from Study
  Country: US (occurrence: US)
  Receive Date: 20231228
  Receipt Date: 20231228
  Transmission Date: 20240110
  Serious: Yes (Death)
  Sender: FDA-Public Use
  Company Number: US-INSMED, INC.-2023-04530-US

PATIENT
  Sex: Female

DRUGS (3)
  1. ARIKAYCE [Suspect]
     Active Substance: AMIKACIN
     Indication: Mycobacterium avium complex infection
     Dosage: 590 MILLIGRAM, QD
     Route: 055
     Dates: start: 20231117
  2. ALBUTEROL [Concomitant]
     Active Substance: ALBUTEROL
     Indication: Product used for unknown indication
     Dosage: UNK
     Route: 055
  3. OXYGEN [Concomitant]
     Active Substance: OXYGEN
     Indication: Product used for unknown indication
     Dosage: UNK
     Route: 055

REACTIONS (5)
  - Death [Fatal]
  - Oropharyngeal discomfort [Not Recovered/Not Resolved]
  - Dysphonia [Not Recovered/Not Resolved]
  - Productive cough [Not Recovered/Not Resolved]
  - Intentional dose omission [Unknown]

NARRATIVE: CASE EVENT DATE: 20230101
